FAERS Safety Report 9760112 (Version 1)
Quarter: 2013Q4

REPORT INFORMATION
  Report Type: Spontaneous
  Country: IT (occurrence: None)
  Receive Date: 20131212
  Receipt Date: 20131212
  Transmission Date: 20140711
  Serious: Yes (Other)
  Sender: FDA-Public Use
  Company Number: 2057900

PATIENT
  Age: 69 Year
  Sex: Female

DRUGS (3)
  1. GEMCITABINE [Suspect]
     Indication: OVARIAN CANCER
     Dosage: 1000 MG/M2 2 MILLIGRAM(S)/SQ. METER (CYCLICAL),  (NOT OTHERWISE SPECIFIED)
     Route: 042
     Dates: start: 20131111, end: 20131111
  2. BEVACIZUMAB [Concomitant]
  3. OTHER THERAPEUTIC PRODUCTS [Concomitant]

REACTIONS (4)
  - Pain in extremity [None]
  - Lymphoedema [None]
  - Skin toxicity [None]
  - Hypertension [None]
